FAERS Safety Report 5604206-5 (Version None)
Quarter: 2008Q1

REPORT INFORMATION
  Report Type: 
  Country: None (occurrence: None)
  Receive Date: 20080128
  Receipt Date: 20080116
  Transmission Date: 20080703
  Serious: Yes (Hospitalization)
  Sender: FDA-Public Use
  Company Number: ES-NOVOPROD-271205

PATIENT

DRUGS (1)
  1. NOVONORM [Suspect]
     Indication: TYPE 2 DIABETES MELLITUS

REACTIONS (1)
  - PNEUMONIA [None]
